FAERS Safety Report 19461283 (Version 1)
Quarter: 2021Q2

REPORT INFORMATION
  Report Type: Spontaneous
  Country: CN (occurrence: CN)
  Receive Date: 20210625
  Receipt Date: 20210625
  Transmission Date: 20210717
  Serious: Yes (Hospitalization, Other)
  Sender: FDA-Public Use
  Company Number: CN-PFIZER INC-2021716851

PATIENT
  Age: 9 Year
  Sex: Female
  Weight: 25 kg

DRUGS (2)
  1. METHOTREXATE. [Suspect]
     Active Substance: METHOTREXATE
     Indication: CHEMOTHERAPY
     Dosage: 10 G, 1X/DAY
     Route: 041
     Dates: start: 20210510, end: 20210510
  2. VINDESINE SULFATE [Concomitant]
     Active Substance: VINDESINE SULFATE
     Indication: CHEMOTHERAPY
     Dosage: 3 MG, 1X/DAY
     Route: 041
     Dates: start: 20210510, end: 20210510

REACTIONS (1)
  - Liver injury [Recovering/Resolving]

NARRATIVE: CASE EVENT DATE: 20210512
